FAERS Safety Report 18677630 (Version 1)
Quarter: 2020Q4

REPORT INFORMATION
  Report Type: Spontaneous
  Country: US (occurrence: US)
  Receive Date: 20201229
  Receipt Date: 20201229
  Transmission Date: 20210114
  Serious: Yes (Disabling, Other)
  Sender: FDA-Public Use
  Company Number: US-PFIZER INC-2020511564

PATIENT
  Age: 90 Year
  Sex: Male

DRUGS (2)
  1. VYNDAMAX [Suspect]
     Active Substance: TAFAMIDIS
     Indication: CARDIAC AMYLOIDOSIS
     Dosage: UNK, 1X/DAY
  2. VYNDAMAX [Suspect]
     Active Substance: TAFAMIDIS
     Indication: LEFT VENTRICULAR FAILURE

REACTIONS (7)
  - Erythema [Unknown]
  - Polymyalgia rheumatica [Unknown]
  - Pain in extremity [Not Recovered/Not Resolved]
  - Oedema peripheral [Unknown]
  - Myalgia [Not Recovered/Not Resolved]
  - Skin fissures [Unknown]
  - Neuropathy peripheral [Unknown]
